FAERS Safety Report 10537119 (Version 3)
Quarter: 2014Q4

REPORT INFORMATION
  Report Type: Spontaneous
  Country: JP (occurrence: JP)
  Receive Date: 20141022
  Receipt Date: 20141112
  Transmission Date: 20150529
  Serious: Yes (Hospitalization)
  Sender: FDA-Public Use
  Company Number: JP-GE HEALTHCARE MEDICAL DIAGNOSTICS-OMPQ-PR-1410S-1299

PATIENT
  Age: 83 Year
  Sex: Male

DRUGS (6)
  1. OLMETEC TABLETS [Concomitant]
  2. OMNIPAQUE [Suspect]
     Active Substance: IOHEXOL
     Indication: PYREXIA
     Route: 042
     Dates: start: 20141009, end: 20141009
  3. OMNIPAQUE [Suspect]
     Active Substance: IOHEXOL
     Indication: DIAGNOSTIC PROCEDURE
  4. ALOGLIPTIN BENZOATE [Concomitant]
     Active Substance: ALOGLIPTIN BENZOATE
  5. REZALTAS COMBINATION TABLETS HD [Concomitant]
     Dates: start: 20140908
  6. WARFARIN [Concomitant]
     Active Substance: WARFARIN

REACTIONS (4)
  - Loss of consciousness [Unknown]
  - Malaise [Unknown]
  - Incontinence [Unknown]
  - Anaphylactic shock [Recovered/Resolved]

NARRATIVE: CASE EVENT DATE: 20141009
